FAERS Safety Report 14497776 (Version 1)
Quarter: 2018Q1

REPORT INFORMATION
  Report Type: Spontaneous
  Country: US (occurrence: US)
  Receive Date: 20180207
  Receipt Date: 20180207
  Transmission Date: 20180509
  Serious: No
  Sender: FDA-Public Use
  Company Number: US-TAKEDA-2018TUS002596

PATIENT
  Sex: Male
  Weight: 69.39 kg

DRUGS (4)
  1. ROZEREM [Suspect]
     Active Substance: RAMELTEON
     Dosage: 8 MG, BID
     Route: 048
     Dates: start: 2011
  2. BRIVARACETAM [Concomitant]
     Active Substance: BRIVARACETAM
     Indication: EPILEPSY
     Dosage: 100 MG, BID
     Route: 048
     Dates: start: 2017
  3. ROZEREM [Suspect]
     Active Substance: RAMELTEON
     Indication: SLEEP DISORDER
     Dosage: 8 MG, QD
     Route: 048
     Dates: start: 2006, end: 2011
  4. VIMPAT [Concomitant]
     Active Substance: LACOSAMIDE
     Indication: EPILEPSY
     Dosage: UNK UNK, QD
     Route: 048

REACTIONS (2)
  - Middle insomnia [Not Recovered/Not Resolved]
  - Overdose [Unknown]

NARRATIVE: CASE EVENT DATE: 2011
